FAERS Safety Report 7404672-9 (Version None)
Quarter: 2011Q2

REPORT INFORMATION
  Report Type: 
  Country: None (occurrence: None)
  Receive Date: 20110411
  Receipt Date: 20110331
  Transmission Date: 20111010
  Serious: No
  Sender: FDA-Public Use
  Company Number: US-BIOGENIDEC-2011BI012216

PATIENT
  Age: 45 Year
  Sex: Female

DRUGS (1)
  1. TYSABRI [Suspect]
     Indication: MULTIPLE SCLEROSIS
     Route: 042
     Dates: start: 20100714

REACTIONS (9)
  - HEADACHE [None]
  - DIARRHOEA [None]
  - WEIGHT DECREASED [None]
  - ASTHENIA [None]
  - PYREXIA [None]
  - NASOPHARYNGITIS [None]
  - NIGHT SWEATS [None]
  - BACTERIAL TEST POSITIVE [None]
  - DIZZINESS [None]
